FAERS Safety Report 7753953-8 (Version None)
Quarter: 2011Q3

REPORT INFORMATION
  Report Type: 
  Country: None (occurrence: None)
  Receive Date: 20110915
  Receipt Date: 20110906
  Transmission Date: 20111222
  Serious: Yes (Hospitalization)
  Sender: FDA-Public Use
  Company Number: BR-ASTRAZENECA-2011SE53828

PATIENT
  Age: 65 Year
  Sex: Male

DRUGS (3)
  1. METOPROLOL SUCCINATE [Suspect]
     Route: 048
  2. ALDACTONE [Concomitant]
     Indication: ADRENAL ADENOMA
     Route: 048
  3. METOPROLOL SUCCINATE [Suspect]
     Indication: ARRHYTHMIA
     Route: 048
     Dates: start: 20100101

REACTIONS (2)
  - ERECTILE DYSFUNCTION [None]
  - BLOOD PRESSURE SYSTOLIC INCREASED [None]
